FAERS Safety Report 7373548-8 (Version None)
Quarter: 2011Q1

REPORT INFORMATION
  Report Type: 
  Country: None (occurrence: None)
  Receive Date: 20110325
  Receipt Date: 20100211
  Transmission Date: 20110831
  Serious: No
  Sender: FDA-Public Use
  Company Number: 2010BI005042

PATIENT
  Sex: Female

DRUGS (1)
  1. TYSABRI [Suspect]
     Indication: MULTIPLE SCLEROSIS
     Route: 042
     Dates: start: 20080513

REACTIONS (9)
  - HEART VALVE INCOMPETENCE [None]
  - BURNING SENSATION [None]
  - ARTHRALGIA [None]
  - DYSSTASIA [None]
  - ASTHENIA [None]
  - FATIGUE [None]
  - ANKLE OPERATION [None]
  - OEDEMA PERIPHERAL [None]
  - GAIT DISTURBANCE [None]
